FAERS Safety Report 5229099-X (Version None)
Quarter: 2007Q1

REPORT INFORMATION
  Report Type: 
  Country: None (occurrence: None)
  Receive Date: 20061201
  Receipt Date: 20060816
  Transmission Date: 20070707
  Serious: No
  Sender: FDA-Public Use
  Company Number: US200608003494

PATIENT
  Age: 55 Year
  Sex: Female

DRUGS (3)
  1. CYMBALTA [Suspect]
     Indication: NEURALGIA
     Dosage: 120 MG, ORAL
     Route: 048
     Dates: start: 20051001
  2. KEPPRA /USA/ (LEVETIRACETAM) [Concomitant]
  3. IBUPROFEN [Concomitant]

REACTIONS (2)
  - DERMATITIS CONTACT [None]
  - RASH PUSTULAR [None]
